FAERS Safety Report 4398818-7 (Version None)
Quarter: 2004Q3

REPORT INFORMATION
  Report Type: 
  Country: None (occurrence: None)
  Receive Date: 20040712
  Receipt Date: 20040701
  Transmission Date: 20050211
  Serious: Yes (Other)
  Sender: FDA-Public Use
  Company Number: HQWYE864602JUL04

PATIENT
  Age: 89 Year
  Sex: Male
  Weight: 53 kg

DRUGS (6)
  1. PROTONIX [Suspect]
     Indication: GASTROENTERITIS HELICOBACTER
     Dosage: 40 MG 1X PER 1 DAY, INTRAVENOUS
     Route: 042
     Dates: start: 20040629, end: 20040629
  2. PROTONIX [Suspect]
     Indication: GASTROENTERITIS HELICOBACTER
     Dosage: 40 MG 2X PER 2 DAY, ORAL
     Route: 048
     Dates: start: 20040630
  3. AMOXICILLIN [Concomitant]
  4. CLARITHROMYCIN [Concomitant]
  5. ACETAMINOPHEN [Concomitant]
  6. POTASSIUM CHLORIDE (OPTASSIUM CHLORIDE) [Concomitant]

REACTIONS (1)
  - THROMBOCYTOPENIA [None]
